FAERS Safety Report 14176050 (Version 1)
Quarter: 2017Q4

REPORT INFORMATION
  Report Type: Spontaneous
  Country: US (occurrence: None)
  Receive Date: 20171109
  Receipt Date: 20171109
  Transmission Date: 20180321
  Serious: No
  Sender: FDA-Public Use
  Company Number: None

PATIENT
  Age: 54 Year
  Sex: Female
  Weight: 57.61 kg

DRUGS (1)
  1. FENTANYL. [Suspect]
     Active Substance: FENTANYL
     Indication: PAIN
     Dosage: 10 MG EVERY 3 DAYS TRANSDERMAL
     Route: 062

REACTIONS (3)
  - Pruritus [None]
  - Rash [None]
  - Skin ulcer [None]

NARRATIVE: CASE EVENT DATE: 20171006
